FAERS Safety Report 20883137 (Version 1)
Quarter: 2022Q2

REPORT INFORMATION
  Report Type: Report from Study
  Country: GB (occurrence: GB)
  Receive Date: 20220527
  Receipt Date: 20220527
  Transmission Date: 20220721
  Serious: Yes (Hospitalization)
  Sender: FDA-Public Use
  Company Number: GB-JNJFOC-20220541746

PATIENT
  Sex: Male
  Weight: 83.3 kg

DRUGS (21)
  1. GUSELKUMAB [Suspect]
     Active Substance: GUSELKUMAB
     Indication: Psoriasis
     Route: 065
     Dates: start: 20190829
  2. ASPIRIN [Concomitant]
     Active Substance: ASPIRIN
     Dates: start: 19930601
  3. NITROGLYCERIN [Concomitant]
     Active Substance: NITROGLYCERIN
     Dates: start: 19930601
  4. NICORANDIL [Concomitant]
     Active Substance: NICORANDIL
     Dates: start: 19930601
  5. ISOSORBIDE MONONITRATE [Concomitant]
     Active Substance: ISOSORBIDE MONONITRATE
     Dates: start: 19960601
  6. BISOPROLOL [Concomitant]
     Active Substance: BISOPROLOL
     Dates: start: 19960601
  7. FLUOXETINE [Concomitant]
     Active Substance: FLUOXETINE HYDROCHLORIDE
     Dates: start: 19960901
  8. ATORVASTATIN [Concomitant]
     Active Substance: ATORVASTATIN
     Dates: start: 20000101
  9. OMEPRAZOLE [Concomitant]
     Active Substance: OMEPRAZOLE
     Dates: start: 20020601
  10. ALLOPURINOL [Concomitant]
     Active Substance: ALLOPURINOL
     Dates: start: 20130101
  11. FUROSEMIDE [Concomitant]
     Active Substance: FUROSEMIDE
     Dates: start: 20160101
  12. FUROSEMIDE [Concomitant]
     Active Substance: FUROSEMIDE
     Dates: start: 20190101
  13. GABAPENTIN [Concomitant]
     Active Substance: GABAPENTIN
  14. CANDESARTAN [Concomitant]
     Active Substance: CANDESARTAN
     Dates: start: 20180101
  15. CLOPIDOGREL [Concomitant]
     Active Substance: CLOPIDOGREL BISULFATE
     Dates: start: 20180501
  16. ACETAMINOPHEN [Concomitant]
     Active Substance: ACETAMINOPHEN
     Dates: start: 20200107
  17. LACTULOSE [Concomitant]
     Active Substance: LACTULOSE
     Dates: start: 20200107
  18. INFLUENZA VIRUS VACCINE [Concomitant]
     Active Substance: INFLUENZA VIRUS VACCINE
     Dates: start: 20201010, end: 20201010
  19. CLARITHROMYCIN [Concomitant]
     Active Substance: CLARITHROMYCIN
     Dates: start: 20201118, end: 20201128
  20. MAGNESIUM [Concomitant]
     Active Substance: MAGNESIUM
     Dates: start: 20201118, end: 20201118
  21. LANSOPRAZOLE [Concomitant]
     Active Substance: LANSOPRAZOLE
     Dates: start: 20201118, end: 20201120

REACTIONS (2)
  - Pneumonia [Recovered/Resolved]
  - Cardiac failure [Recovered/Resolved]

NARRATIVE: CASE EVENT DATE: 20201118
